FAERS Safety Report 17106841 (Version 1)
Quarter: 2019Q4

REPORT INFORMATION
  Report Type: Spontaneous
  Country: FR (occurrence: FR)
  Receive Date: 20191203
  Receipt Date: 20191203
  Transmission Date: 20200122
  Serious: Yes (Death, Other)
  Sender: FDA-Public Use
  Company Number: FR-AUROBINDO-AUR-APL-2019-076264

PATIENT

DRUGS (1)
  1. AMOXICILLIN. [Suspect]
     Active Substance: AMOXICILLIN
     Indication: INTERVERTEBRAL DISCITIS
     Dosage: 150 MILLIGRAM/KILOGRAM, DAILY (CORRESPONDED TO A DOSE BETWEEN 12G/D AND 15 G/D)
     Route: 065

REACTIONS (4)
  - Haematuria [Unknown]
  - Crystalluria [Fatal]
  - Acute kidney injury [Unknown]
  - Anuria [Unknown]
